FAERS Safety Report 4799788-X (Version None)
Quarter: 2005Q4

REPORT INFORMATION
  Report Type: 
  Country: None (occurrence: None)
  Receive Date: 20051012
  Receipt Date: 20051012
  Transmission Date: 20060501
  Serious: Yes (Life-Threatening)
  Sender: FDA-Public Use
  Company Number: None

PATIENT
  Age: 11 Year
  Sex: Female
  Weight: 34.927 kg

DRUGS (1)
  1. IRON DEXTRON 50 MG/ML [Suspect]
     Indication: IRON DEFICIENCY
     Dosage: 7ML=350 MG ONCE IV
     Route: 042

REACTIONS (1)
  - ANAPHYLACTIC REACTION [None]
